FAERS Safety Report 10263068 (Version 2)
Quarter: 2014Q2

REPORT INFORMATION
  Report Type: Report from Study
  Country: US (occurrence: US)
  Receive Date: 20140626
  Receipt Date: 20140626
  Transmission Date: 20141212
  Serious: Yes (Other)
  Sender: FDA-Public Use
  Company Number: US-MYLANLABS-2014S1000325

PATIENT
  Age: 41 Year
  Sex: Male
  Weight: 110 kg

DRUGS (7)
  1. CLOZAPINE TABLETS [Suspect]
     Route: 048
     Dates: end: 20140102
  2. CLOZAPINE TABLETS [Suspect]
     Route: 048
     Dates: end: 20140102
  3. ALLOPURINOL [Concomitant]
     Route: 048
  4. COLCHICINE [Concomitant]
     Route: 048
  5. AMARYL [Concomitant]
     Route: 048
  6. METFORMIN [Concomitant]
     Dosage: WITH FOOD
     Route: 048
  7. LOVAZA [Concomitant]
     Route: 048

REACTIONS (2)
  - Granulocytopenia [Recovered/Resolved]
  - Leukopenia [Recovered/Resolved]
